FAERS Safety Report 17893159 (Version 1)
Quarter: 2020Q2

REPORT INFORMATION
  Report Type: Spontaneous
  Country: US (occurrence: US)
  Receive Date: 20200614
  Receipt Date: 20200614
  Transmission Date: 20200714
  Serious: Yes (Death, Life-Threatening, Other)
  Sender: FDA-Public Use
  Company Number: US-AMGEN-USASP2020091677

PATIENT

DRUGS (10)
  1. DOXORUBICIN [Concomitant]
     Active Substance: DOXORUBICIN
     Indication: NON-HODGKIN^S LYMPHOMA
     Dosage: 50 MILLIGRAM/SQ. METER, DAY 1
  2. ETOPOSIDE. [Concomitant]
     Active Substance: ETOPOSIDE
     Indication: NON-HODGKIN^S LYMPHOMA
     Dosage: 240 MILLIGRAM/SQ. METER, DAY 1
  3. LEUCOVORINE [Concomitant]
     Active Substance: LEUCOVORIN
     Indication: NON-HODGKIN^S LYMPHOMA
     Dosage: 25 MILLIGRAM/SQ. METER, EVERY 6 HOURS FOR FOUR DOSES TO BEGIN 24 HOURS AFTER METHOTREXATE
     Route: 048
  4. CYTARABINE. [Concomitant]
     Active Substance: CYTARABINE
     Indication: NON-HODGKIN^S LYMPHOMA
     Dosage: 600 MILLIGRAM/SQ. METER, DAY 8
  5. VINCRISTINE [Concomitant]
     Active Substance: VINCRISTINE
     Indication: NON-HODGKIN^S LYMPHOMA
     Dosage: 1.4 MILLIGRAM/SQ. METER, DAY 8
  6. NEUPOGEN [Suspect]
     Active Substance: FILGRASTIM
     Indication: PRODUCT USED FOR UNKNOWN INDICATION
     Dosage: 5 MICROGRAM/KILOGRAM, QD (DAYS 9 TO 19)
     Route: 058
  7. METHOTREXATE. [Concomitant]
     Active Substance: METHOTREXATE
     Indication: NON-HODGKIN^S LYMPHOMA
     Dosage: 120 MILLIGRAM/SQ. METER, DAY 8
  8. CYCLOPHOSPHAMIDE. [Concomitant]
     Active Substance: CYCLOPHOSPHAMIDE
     Indication: NON-HODGKIN^S LYMPHOMA
     Dosage: 1300 MILLIGRAM/SQ. METER, DAY 1
  9. PREDNISONE. [Concomitant]
     Active Substance: PREDNISONE
     Indication: NON-HODGKIN^S LYMPHOMA
     Dosage: 60 MILLIGRAM/SQ. METER, DAYS 1-14
     Route: 048
  10. BLEOMYCIN [Concomitant]
     Active Substance: BLEOMYCIN SULFATE
     Indication: NON-HODGKIN^S LYMPHOMA
     Dosage: 5 MILLIGRAM/SQ. METER, DAY 8

REACTIONS (34)
  - Infection [Unknown]
  - Pulmonary embolism [Unknown]
  - Pancreatitis [Unknown]
  - Phlebitis [Unknown]
  - Granulocytopenia [Unknown]
  - Nervous system disorder [Unknown]
  - Toxicity to various agents [Unknown]
  - Coagulopathy [Unknown]
  - Therapeutic product effect incomplete [Unknown]
  - Leukopenia [Unknown]
  - Liver disorder [Unknown]
  - Withdrawal syndrome [Unknown]
  - Vomiting [Unknown]
  - Anaemia [Unknown]
  - Adverse event [Unknown]
  - Myelodysplastic syndrome [Unknown]
  - Diarrhoea [Unknown]
  - Cardiac disorder [Unknown]
  - Haemorrhage [Unknown]
  - Skin disorder [Unknown]
  - Weight increased [Unknown]
  - Weight decreased [Unknown]
  - Hypertension [Unknown]
  - Alopecia [Unknown]
  - Thrombocytopenia [Unknown]
  - Hypersensitivity [Unknown]
  - Lung disorder [Unknown]
  - Genitourinary symptom [Unknown]
  - Stomatitis [Unknown]
  - Metabolic disorder [Unknown]
  - Acute leukaemia [Fatal]
  - Hypotension [Unknown]
  - Nausea [Unknown]
  - Pyrexia [Unknown]
